FAERS Safety Report 7103117-6 (Version None)
Quarter: 2010Q4

REPORT INFORMATION
  Report Type: 
  Country: None (occurrence: None)
  Receive Date: 20101115
  Receipt Date: 20100113
  Transmission Date: 20110411
  Serious: No
  Sender: FDA-Public Use
  Company Number: US-KINGPHARMUSA00001-K201000046

PATIENT
  Age: 72 Year
  Sex: Female
  Weight: 67.574 kg

DRUGS (3)
  1. LEVOXYL [Suspect]
     Indication: HYPOTHYROIDISM
     Dosage: 75 MCG, QD
     Route: 048
     Dates: start: 20090201
  2. PREMARIN [Concomitant]
     Dosage: 0.3 MG, QD
     Route: 048
  3. TOPROL-XL [Concomitant]
     Indication: ARRHYTHMIA
     Dosage: 50 MG, BID
     Route: 048

REACTIONS (3)
  - CHOKING [None]
  - ORAL DISCOMFORT [None]
  - RETCHING [None]
